FAERS Safety Report 5072690-4 (Version None)
Quarter: 2006Q3

REPORT INFORMATION
  Report Type: 
  Country: None (occurrence: None)
  Receive Date: 20060807
  Receipt Date: 20060725
  Transmission Date: 20061208
  Serious: Yes (Other)
  Sender: FDA-Public Use
  Company Number: FR-ROCHE-457229

PATIENT
  Age: 23 Year
  Sex: Female

DRUGS (2)
  1. ACCUTANE [Suspect]
     Indication: DRUG USE FOR UNKNOWN INDICATION
     Route: 065
     Dates: end: 20060513
  2. MINIDRIL [Concomitant]
     Indication: CONTRACEPTION

REACTIONS (2)
  - NO ADVERSE EFFECT [None]
  - PREGNANCY [None]
